FAERS Safety Report 21246701 (Version 2)
Quarter: 2022Q3

REPORT INFORMATION
  Report Type: Other
  Country: CN (occurrence: None)
  Receive Date: 20220824
  Receipt Date: 20220905
  Transmission Date: 20221026
  Serious: Yes (Other)
  Sender: FDA-Public Use
  Company Number: CN-ROCHE-3163951

PATIENT
  Age: 55 Year
  Sex: Male

DRUGS (3)
  1. ATEZOLIZUMAB [Suspect]
     Active Substance: ATEZOLIZUMAB
     Indication: Small cell lung cancer extensive stage
     Dosage: 2ND DOSE ON 12/APR/2021
     Route: 065
     Dates: start: 20210319, end: 20211130
  2. CARBOPLATIN [Suspect]
     Active Substance: CARBOPLATIN
     Indication: Small cell lung cancer extensive stage
     Dosage: 2ND DOSE ON 12/APR/2021
     Route: 065
     Dates: start: 20210319, end: 202106
  3. ETOPOSIDE [Suspect]
     Active Substance: ETOPOSIDE
     Indication: Small cell lung cancer extensive stage
     Dosage: 2ND DOSE ON 12/APR/2021
     Route: 065
     Dates: start: 20210319, end: 202106

REACTIONS (3)
  - Type 2 diabetes mellitus [Unknown]
  - Diabetes mellitus inadequate control [Recovered/Resolved]
  - Hypothyroidism [Unknown]

NARRATIVE: CASE EVENT DATE: 20210901
